FAERS Safety Report 13204304 (Version 1)
Quarter: 2017Q1

REPORT INFORMATION
  Report Type: Spontaneous
  Country: US (occurrence: US)
  Receive Date: 20170209
  Receipt Date: 20170209
  Transmission Date: 20170428
  Serious: No
  Sender: FDA-Public Use
  Company Number: US-009507513-1702USA002299

PATIENT
  Age: 20 Year
  Sex: Female
  Weight: 68.93 kg

DRUGS (2)
  1. NEXPLANON [Suspect]
     Active Substance: ETONOGESTREL
     Dosage: 1 SINGLE ROD, UNK
     Route: 059
     Dates: start: 20170116
  2. NEXPLANON [Suspect]
     Active Substance: ETONOGESTREL
     Dosage: 1 SINGLE ROD, UNK
     Route: 059
     Dates: start: 20170116, end: 20170116

REACTIONS (3)
  - Complication of device insertion [Recovered/Resolved]
  - Product quality issue [Unknown]
  - No adverse event [Unknown]

NARRATIVE: CASE EVENT DATE: 20170116
